FAERS Safety Report 11151251 (Version 1)
Quarter: 2015Q2

REPORT INFORMATION
  Report Type: Spontaneous
  Country: GB (occurrence: GB)
  Receive Date: 20150601
  Receipt Date: 20150601
  Transmission Date: 20150821
  Serious: Yes (Other)
  Sender: FDA-Public Use
  Company Number: GB-TEVA-565596ACC

PATIENT
  Age: 67 Year
  Sex: Female

DRUGS (1)
  1. TRIMETHOPRIM. [Suspect]
     Active Substance: TRIMETHOPRIM
     Indication: INFECTION

REACTIONS (4)
  - Vomiting [Unknown]
  - Pain [Unknown]
  - Nausea [Unknown]
  - Feeding disorder [Unknown]
